FAERS Safety Report 8605892-8 (Version None)
Quarter: 2012Q3

REPORT INFORMATION
  Report Type: 
  Country: None (occurrence: None)
  Receive Date: 20120820
  Receipt Date: 20120809
  Transmission Date: 20120928
  Serious: Yes (Other)
  Sender: FDA-Public Use
  Company Number: FR-VIIV HEALTHCARE LIMITED-B0821709A

PATIENT
  Sex: Male

DRUGS (3)
  1. ABACAVIR SULFATE/LAMIVUDINE [Suspect]
     Indication: HIV INFECTION CDC CATEGORY C2
     Dosage: 1UNIT PER DAY
     Route: 048
     Dates: start: 20111216, end: 20120130
  2. NORVIR [Concomitant]
     Indication: HIV INFECTION CDC CATEGORY C2
     Dosage: 1UNIT PER DAY
     Route: 048
     Dates: start: 20111216
  3. REYATAZ [Concomitant]
     Indication: HIV INFECTION CDC CATEGORY C2
     Dosage: 1UNIT PER DAY
     Route: 048
     Dates: start: 20111216

REACTIONS (3)
  - DRUG INTOLERANCE [None]
  - MALAISE [None]
  - DYSPNOEA [None]
